FAERS Safety Report 21944972 (Version 2)
Quarter: 2023Q1

REPORT INFORMATION
  Report Type: Spontaneous
  Country: PL (occurrence: PL)
  Receive Date: 20230202
  Receipt Date: 20230216
  Transmission Date: 20230418
  Serious: Yes (Other)
  Sender: FDA-Public Use
  Company Number: PL-SUN PHARMACEUTICAL INDUSTRIES LTD-2022RR-370678

PATIENT
  Age: 64 Year
  Sex: Male

DRUGS (4)
  1. PAMIDRONATE [Suspect]
     Active Substance: PAMIDRONATE DISODIUM
     Indication: Renal cancer metastatic
     Dosage: UNK
     Route: 065
  2. SUNITINIB [Suspect]
     Active Substance: SUNITINIB
     Indication: Renal cancer metastatic
     Dosage: UNK, CYCLIC
     Route: 065
     Dates: start: 201804
  3. SUNITINIB [Suspect]
     Active Substance: SUNITINIB
     Dosage: 37.5 MILLIGRAM, CYCLIC (FROM THE 5TH CYCLE ON)
     Route: 065
  4. CABOZANTINIB [Suspect]
     Active Substance: CABOZANTINIB
     Indication: Renal cancer metastatic
     Dosage: UNK
     Route: 065

REACTIONS (8)
  - Hypothyroidism [Unknown]
  - Neutropenia [Recovered/Resolved]
  - Blood bilirubin increased [Unknown]
  - Leukopenia [Recovered/Resolved]
  - Renal cancer metastatic [Unknown]
  - Malignant neoplasm progression [Unknown]
  - Fatigue [Unknown]
  - Therapy partial responder [Unknown]

NARRATIVE: CASE EVENT DATE: 20190301
